FAERS Safety Report 14704779 (Version 1)
Quarter: 2018Q2

REPORT INFORMATION
  Report Type: Spontaneous
  Country: GB (occurrence: GB)
  Receive Date: 20180402
  Receipt Date: 20180402
  Transmission Date: 20180711
  Serious: Yes (Hospitalization)
  Sender: FDA-Public Use
  Company Number: GB-TEVA-588447ISR

PATIENT
  Age: 44 Year
  Sex: Female

DRUGS (7)
  1. METHYLCHLOROISOTHIAZOLINONE. [Suspect]
     Active Substance: METHYLCHLOROISOTHIAZOLINONE
     Route: 065
  2. FLUCONAZOLE. [Suspect]
     Active Substance: FLUCONAZOLE
     Indication: RASH PRURITIC
     Dosage: 150 MG; SINGLE DOSE
     Route: 048
  3. FLUCLOXACILLIN [Concomitant]
     Active Substance: FLUCLOXACILLIN
     Indication: RASH PRURITIC
     Route: 048
  4. CANESTEN [Suspect]
     Active Substance: CLOTRIMAZOLE
     Indication: RASH PRURITIC
     Route: 061
  5. FLUCLOXACILLIN [Concomitant]
     Active Substance: FLUCLOXACILLIN
     Indication: DERMATITIS CONTACT
  6. FLUCONAZOLE. [Suspect]
     Active Substance: FLUCONAZOLE
     Indication: DERMATITIS CONTACT
  7. METHYLISOTHIAZOLINONE [Suspect]
     Active Substance: METHYLISOTHIAZOLINONE
     Route: 065

REACTIONS (2)
  - Rash generalised [Unknown]
  - Dermatitis allergic [Unknown]
